FAERS Safety Report 6668341-5 (Version None)
Quarter: 2010Q2

REPORT INFORMATION
  Report Type: 
  Country: None (occurrence: None)
  Receive Date: 20100406
  Receipt Date: 20100325
  Transmission Date: 20101027
  Serious: Yes (Disabling, Other)
  Sender: FDA-Public Use
  Company Number: US-JNJFOC-20100106903

PATIENT
  Sex: Male
  Weight: 135.17 kg

DRUGS (9)
  1. REMICADE [Suspect]
     Indication: CROHN'S DISEASE
     Route: 042
  2. REMICADE [Suspect]
     Route: 042
  3. REMICADE [Suspect]
     Route: 042
  4. REMICADE [Suspect]
     Route: 042
  5. REMICADE [Suspect]
     Route: 042
  6. REMICADE [Suspect]
     Route: 042
  7. ZANTAC [Concomitant]
     Indication: PROPHYLAXIS AGAINST GASTROINTESTINAL ULCER
  8. PROTONIX [Concomitant]
     Indication: DIARRHOEA
  9. ENTOCORT EC [Concomitant]

REACTIONS (18)
  - AMNESIA [None]
  - ANXIETY [None]
  - APATHY [None]
  - DISORIENTATION [None]
  - DIZZINESS [None]
  - DYSPEPSIA [None]
  - FATIGUE [None]
  - GAIT DISTURBANCE [None]
  - HEAD DISCOMFORT [None]
  - HEADACHE [None]
  - HOT FLUSH [None]
  - HYPERHIDROSIS [None]
  - HYPOAESTHESIA [None]
  - MUSCULAR WEAKNESS [None]
  - MYALGIA [None]
  - RASH [None]
  - SLEEP APNOEA SYNDROME [None]
  - VISION BLURRED [None]
